FAERS Safety Report 19145289 (Version 1)
Quarter: 2021Q2

REPORT INFORMATION
  Report Type: Spontaneous
  Country: BE (occurrence: BE)
  Receive Date: 20210416
  Receipt Date: 20210416
  Transmission Date: 20210717
  Serious: Yes (Death, Other)
  Sender: FDA-Public Use
  Company Number: BE-PFIZER INC-2021390108

PATIENT

DRUGS (1)
  1. VANCOMYCIN HCL [Suspect]
     Active Substance: VANCOMYCIN HYDROCHLORIDE
     Indication: CORYNEBACTERIUM INFECTION
     Dosage: UNK
     Route: 033

REACTIONS (2)
  - Peritonitis [Fatal]
  - Cardiovascular disorder [Fatal]
